FAERS Safety Report 6088797-9 (Version None)
Quarter: 2009Q1

REPORT INFORMATION
  Report Type: 
  Country: None (occurrence: None)
  Receive Date: 20090224
  Receipt Date: 20090217
  Transmission Date: 20090719
  Serious: Yes (Other)
  Sender: FDA-Public Use
  Company Number: US-BAYER-200913453NA

PATIENT
  Age: 63 Year
  Sex: Female

DRUGS (4)
  1. ULTRAVIST 370 [Suspect]
     Indication: COMPUTERISED TOMOGRAM THORAX
     Dosage: TOTAL DAILY DOSE: 100 ML  UNIT DOSE: 500 ML
     Route: 042
     Dates: start: 20090216, end: 20090216
  2. PRILOSEC [Concomitant]
  3. ADVAIR HFA [Concomitant]
  4. NOSE SPRAY [Concomitant]

REACTIONS (6)
  - ABNORMAL SENSATION IN EYE [None]
  - DRY THROAT [None]
  - EYE IRRITATION [None]
  - EYE SWELLING [None]
  - OCULAR HYPERAEMIA [None]
  - THROAT TIGHTNESS [None]
